FAERS Safety Report 19481770 (Version 1)
Quarter: 2021Q3

REPORT INFORMATION
  Report Type: Spontaneous
  Country: NL (occurrence: NL)
  Receive Date: 20210701
  Receipt Date: 20210701
  Transmission Date: 20211014
  Serious: Yes (Other)
  Sender: FDA-Public Use
  Company Number: NL-TEVA-2021-NL-1928037

PATIENT
  Age: 33 Year
  Sex: Female
  Weight: 57 kg

DRUGS (1)
  1. TRAMADOL HYDROCHLORIDE / BRAND NAME NOT SPECIFIED [Suspect]
     Active Substance: TRAMADOL HYDROCHLORIDE
     Indication: RHEUMATOID ARTHRITIS
     Dosage: 1 DOSAGE FORMS DAILY; THERAPY END DATE ASKU
     Dates: start: 20210507

REACTIONS (8)
  - Rheumatoid arthritis [Not Recovered/Not Resolved]
  - Chills [Not Recovered/Not Resolved]
  - Injection site pain [Not Recovered/Not Resolved]
  - Headache [Not Recovered/Not Resolved]
  - Crohn^s disease [Unknown]
  - Nausea [Not Recovered/Not Resolved]
  - Malaise [Not Recovered/Not Resolved]
  - Fatigue [Recovering/Resolving]

NARRATIVE: CASE EVENT DATE: 20210523
